FAERS Safety Report 13873171 (Version 1)
Quarter: 2017Q3

REPORT INFORMATION
  Report Type: Spontaneous
  Country: US (occurrence: None)
  Receive Date: 20170814
  Receipt Date: 20170814
  Transmission Date: 20171127
  Serious: Yes (Other)
  Sender: FDA-Public Use
  Company Number: None

PATIENT
  Age: 81 Year
  Sex: Female

DRUGS (1)
  1. NINLARO [Suspect]
     Active Substance: IXAZOMIB
     Indication: PLASMA CELL MYELOMA
     Route: 048
     Dates: start: 20170708, end: 201707

REACTIONS (5)
  - Ocular hyperaemia [None]
  - Eyelid oedema [None]
  - Dry eye [None]
  - Vision blurred [None]
  - Unevaluable event [None]

NARRATIVE: CASE EVENT DATE: 20170708
